FAERS Safety Report 21426735 (Version 1)
Quarter: 2022Q4

REPORT INFORMATION
  Report Type: Spontaneous
  Country: US (occurrence: US)
  Receive Date: 20221008
  Receipt Date: 20221008
  Transmission Date: 20230113
  Serious: Yes (Disabling, Other)
  Sender: FDA-Public Use
  Company Number: US-PURDUE-USA-2020-0191143

PATIENT
  Sex: Female

DRUGS (3)
  1. DILAUDID [Suspect]
     Active Substance: HYDROMORPHONE HYDROCHLORIDE
     Indication: Product used for unknown indication
     Dosage: UNKNOWN DOSAGE
     Route: 048
  2. MS CONTIN [Suspect]
     Active Substance: MORPHINE SULFATE
     Indication: Product used for unknown indication
     Dosage: UNKNOWN DOSAGE
     Route: 048
  3. VICODIN [Suspect]
     Active Substance: ACETAMINOPHEN\HYDROCODONE BITARTRATE
     Indication: Product used for unknown indication
     Dosage: UNKNOWN DOSAGE
     Route: 065

REACTIONS (4)
  - Overdose [Unknown]
  - Drug dependence [Unknown]
  - Maternal exposure during pregnancy [Recovered/Resolved]
  - Drug withdrawal syndrome [Unknown]
